FAERS Safety Report 7750640-7 (Version None)
Quarter: 2011Q3

REPORT INFORMATION
  Report Type: 
  Country: None (occurrence: None)
  Receive Date: 20110914
  Receipt Date: 20110907
  Transmission Date: 20111222
  Serious: Yes (Other)
  Sender: FDA-Public Use
  Company Number: US-GLAXOSMITHKLINE-A0943714A

PATIENT
  Age: 80 Year
  Sex: Male

DRUGS (4)
  1. DIURETIC [Concomitant]
  2. BETA BLOCK [Concomitant]
  3. PREVACID [Concomitant]
  4. ADVAIR DISKUS 100/50 [Suspect]
     Indication: DYSPNOEA
     Dosage: 2PUFF TWICE PER DAY
     Route: 055
     Dates: start: 20100401

REACTIONS (1)
  - HAEMORRHAGE [None]
